FAERS Safety Report 8900018 (Version 1)
Quarter: 2012Q4

REPORT INFORMATION
  Report Type: 
  Country: US (occurrence: US)
  Receive Date: 20121108
  Receipt Date: 20121108
  Transmission Date: 20130627
  Serious: No
  Sender: FDA-Public Use
  Company Number: US-AMGEN-USASP2012036982

PATIENT
  Age: 58 Year
  Sex: Female
  Weight: 50.79 kg

DRUGS (13)
  1. ENBREL [Suspect]
     Indication: PRODUCT USED FOR UNKNOWN INDICATION
     Dosage: 50 mg, qwk
     Route: 058
  2. MAGNESIUM [Concomitant]
     Dosage: 200 mg, UNK
  3. LEVOTHYROXIN [Concomitant]
     Dosage: 100 mug, UNK
  4. RANITIDINE [Concomitant]
     Dosage: 150 mg, UNK
  5. FOLIC ACID [Concomitant]
  6. ALENDRONATE [Concomitant]
     Dosage: 10 mg, UNK
  7. FISH OIL [Concomitant]
  8. COLLAGEN [Concomitant]
     Dosage: 500 mg, UNK
  9. VITAMIN C                          /00008001/ [Concomitant]
     Dosage: 250 mg, UNK
  10. VITAMIN E                          /00110501/ [Concomitant]
  11. CALCIUM +VIT D [Concomitant]
  12. MULTIVITAMIN                       /00097801/ [Concomitant]
  13. GLUCOSAMINE [Concomitant]
     Dosage: 500 mg, UNK

REACTIONS (1)
  - Injection site pain [Unknown]
